FAERS Safety Report 4398640-1 (Version None)
Quarter: 2004Q2

REPORT INFORMATION
  Report Type: 
  Country: None (occurrence: None)
  Receive Date: 20040621
  Receipt Date: 20031028
  Transmission Date: 20050107
  Serious: Yes (Other)
  Sender: FDA-Public Use
  Company Number: KII-1999-0000274

PATIENT
  Sex: Female

DRUGS (1)
  1. OXYCODONE HCL [Suspect]
     Indication: PAIN
     Dosage: 80 MG, SEE TEXT

REACTIONS (3)
  - DRUG ABUSER [None]
  - OVERDOSE [None]
  - SOMNOLENCE [None]
